FAERS Safety Report 8564532-7 (Version None)
Quarter: 2012Q3

REPORT INFORMATION
  Report Type: 
  Country: None (occurrence: None)
  Receive Date: 20120803
  Receipt Date: 20120727
  Transmission Date: 20120928
  Serious: Yes (Other)
  Sender: FDA-Public Use
  Company Number: GB-JNJFOC-20120704469

PATIENT
  Sex: Male

DRUGS (9)
  1. FLUCLOXACILLIN [Suspect]
     Indication: FUNGAL INFECTION
     Dosage: 28 CAPSULES, 4 TIMES A DAY FOR 7 DAYS
     Route: 065
  2. FLUCLOXACILLIN [Suspect]
     Dosage: 28 CAPSULES, 4 TIMES A DAY FOR 7 DAYS
     Route: 065
  3. MICONAZOLE [Suspect]
     Indication: CELLULITIS
     Route: 061
  4. DAKTACORT [Suspect]
     Indication: FUNGAL INFECTION
     Route: 065
  5. DAKTACORT [Suspect]
     Indication: CELLULITIS
     Route: 065
  6. ITRACONAZOLE [Suspect]
     Indication: FUNGAL INFECTION
     Route: 065
  7. FLUCLOXACILLIN [Suspect]
     Dosage: 28 CAPSULES, 4 TIMES A DAY FOR 7 DAYS
     Route: 065
  8. FLUCLOXACILLIN [Suspect]
     Indication: CELLULITIS
     Dosage: 28 CAPSULES, 4 TIMES A DAY FOR 7 DAYS
     Route: 065
  9. MICONAZOLE [Suspect]
     Indication: FUNGAL INFECTION
     Route: 061

REACTIONS (3)
  - CELLULITIS [None]
  - BLISTER [None]
  - FUNGAL INFECTION [None]
